FAERS Safety Report 7927892-3 (Version None)
Quarter: 2011Q4

REPORT INFORMATION
  Report Type: 
  Country: None (occurrence: None)
  Receive Date: 20111118
  Receipt Date: 20111104
  Transmission Date: 20120403
  Serious: Yes (Hospitalization, Other)
  Sender: FDA-Public Use
  Company Number: US-ACTELION-A-CH2011-56950

PATIENT
  Sex: Female
  Weight: 0.48 kg

DRUGS (3)
  1. EPOPROSTENOL SODIUM [Suspect]
     Dosage: 26 NG/KG, PER MIN
     Route: 037
  2. EPOPROSTENOL SODIUM [Suspect]
     Dosage: UNK , UNK
     Route: 064
  3. EPOPROSTENOL SODIUM [Suspect]
     Indication: MATERNAL EXPOSURE DURING PREGNANCY
     Dosage: 6 NG/KG, PER MIN
     Route: 064

REACTIONS (7)
  - FOETAL CARDIAC DISORDER [None]
  - PREMATURE BABY [None]
  - PREMATURE DELIVERY [None]
  - CAESAREAN SECTION [None]
  - FOETAL GROWTH RESTRICTION [None]
  - FOETAL EXPOSURE DURING PREGNANCY [None]
  - TWIN PREGNANCY [None]
